FAERS Safety Report 25834658 (Version 1)
Quarter: 2025Q3

REPORT INFORMATION
  Report Type: Spontaneous
  Country: US (occurrence: US)
  Receive Date: 20250923
  Receipt Date: 20250923
  Transmission Date: 20251020
  Serious: Yes (Other)
  Sender: MERCK SHARP & DOHME LLC
  Company Number: US-009507513-2331513

PATIENT
  Sex: Female
  Weight: 113.4 kg

DRUGS (3)
  1. KEYTRUDA [Suspect]
     Active Substance: PEMBROLIZUMAB
     Route: 065
     Dates: start: 2025
  2. LENVATINIB [Suspect]
     Active Substance: LENVATINIB
     Dosage: STRENGTH: 4MG
     Route: 048
     Dates: start: 2025
  3. LENVATINIB [Suspect]
     Active Substance: LENVATINIB
     Dosage: STRENGTH: 4MG
     Route: 048
     Dates: start: 2025, end: 2025

REACTIONS (2)
  - Uveitis [Recovering/Resolving]
  - Product use issue [Unknown]

NARRATIVE: CASE EVENT DATE: 20250101
